FAERS Safety Report 19008618 (Version 1)
Quarter: 2021Q1

REPORT INFORMATION
  Report Type: Other
  Country: GB (occurrence: GB)
  Receive Date: 20210316
  Receipt Date: 20210316
  Transmission Date: 20210420
  Serious: Yes (Other)
  Sender: FDA-Public Use
  Company Number: GB-CELLTRION INC.-2021GB003290

PATIENT

DRUGS (17)
  1. DOCETAXEL. [Suspect]
     Active Substance: DOCETAXEL
     Dosage: 148 MG, ONCE EVERY 3 WEEKS
     Route: 042
     Dates: start: 20170412, end: 20170614
  2. EPIRUBICIN [Suspect]
     Active Substance: EPIRUBICIN
     Indication: BREAST CANCER METASTATIC
     Dosage: 180 MG, ONCE EVERY 3 WEEKS
     Route: 042
     Dates: start: 20180223, end: 20180427
  3. LACTULOSE. [Concomitant]
     Active Substance: LACTULOSE
     Indication: CONSTIPATION
     Dosage: 15 ML, QD
     Route: 048
     Dates: start: 20180315
  4. SENNA [Concomitant]
     Active Substance: SENNA LEAF\SENNOSIDES\SENNOSIDES A AND B
     Indication: CONSTIPATION
     Dosage: 30 MG
     Route: 048
     Dates: start: 20180315
  5. EPIRUBICIN [Suspect]
     Active Substance: EPIRUBICIN
     Dosage: 140 MG, ONCE EVERY 3 WEEKS
     Route: 042
     Dates: start: 20180525, end: 20180615
  6. POTASSIUM CHLORIDE. [Concomitant]
     Active Substance: POTASSIUM CHLORIDE
     Indication: BLOOD POTASSIUM DECREASED
     Dosage: UNK, TID
     Route: 048
     Dates: start: 20200324, end: 20200326
  7. TRASTUZUMAB (UNKNOWN) [Suspect]
     Active Substance: TRASTUZUMAB
     Indication: BREAST CANCER METASTATIC
     Dosage: 483 MG/KG
     Route: 042
     Dates: start: 20170228
  8. PERTUZUMAB. [Suspect]
     Active Substance: PERTUZUMAB
     Dosage: 420 MG/KG, 3/WEEK
     Route: 042
     Dates: start: 20170412, end: 20180112
  9. AMOXIL [Concomitant]
     Active Substance: AMOXICILLIN
     Indication: LOWER RESPIRATORY TRACT INFECTION
     Dosage: 1500 MG, QD
     Route: 048
     Dates: start: 20180102, end: 20180107
  10. CAPECITABINE. [Suspect]
     Active Substance: CAPECITABINE
     Indication: BREAST CANCER METASTATIC
     Dosage: 2000 MG TWICE A DAY
     Route: 048
     Dates: start: 20200721
  11. DOCETAXEL. [Suspect]
     Active Substance: DOCETAXEL
     Indication: BREAST CANCER METASTATIC
     Dosage: 148 MG, ONCE EVERY 3 WEEKS
     Route: 042
     Dates: start: 20170412
  12. TRASTUZUMAB (UNKNOWN) [Suspect]
     Active Substance: TRASTUZUMAB
     Dosage: 483 MG
     Route: 042
     Dates: start: 20180228
  13. CO?AMOXICLAV [Concomitant]
     Active Substance: AMOXICILLIN\CLAVULANATE POTASSIUM
     Dosage: 1875 MG, QD
     Route: 048
     Dates: start: 20200324, end: 20200328
  14. DIFFLAM [BENZYDAMINE] [Concomitant]
     Active Substance: BENZYDAMINE
     Indication: MOUTH ULCERATION
     Dosage: UNK, PRN
     Route: 048
     Dates: start: 20180313
  15. PERTUZUMAB. [Suspect]
     Active Substance: PERTUZUMAB
     Indication: BREAST CANCER METASTATIC
     Dosage: 420 MG/KG, 3/WEEK
     Route: 042
     Dates: start: 20170412
  16. PHOSPHATE SANDOZ EFFERVESCENT [Concomitant]
     Dosage: UNK, TID
     Route: 048
     Dates: start: 20200324, end: 20200328
  17. TRASTUZUMAB (UNKNOWN) [Suspect]
     Active Substance: TRASTUZUMAB
     Dosage: 514.5 MG, 1/WEEK
     Route: 042
     Dates: start: 20170412, end: 20170412

REACTIONS (3)
  - Vascular device infection [Recovered/Resolved]
  - Overdose [Unknown]
  - Lower respiratory tract infection [Recovered/Resolved]

NARRATIVE: CASE EVENT DATE: 20190402
